FAERS Safety Report 15835034 (Version 1)
Quarter: 2019Q1

REPORT INFORMATION
  Report Type: Spontaneous
  Country: US (occurrence: US)
  Receive Date: 20190116
  Receipt Date: 20190116
  Transmission Date: 20190417
  Serious: No
  Sender: FDA-Public Use
  Company Number: US-CHILTERN-US-2018-000141

PATIENT
  Sex: Female

DRUGS (5)
  1. VYZULTA [Concomitant]
     Active Substance: LATANOPROSTENE BUNOD
     Dosage: 0.024%
     Route: 047
  2. PILOCARPINE HCL [Concomitant]
     Active Substance: PILOCARPINE HYDROCHLORIDE
     Dosage: 1% QID
     Route: 047
  3. RHOPRESSA [Suspect]
     Active Substance: NETARSUDIL MESYLATE
     Dosage: 1 GTT, QD
     Route: 047
  4. BETAXOLOL. [Concomitant]
     Active Substance: BETAXOLOL
     Dosage: 0.5% BID
     Route: 047
  5. PRESERVISION AREDS 2 [Concomitant]
     Active Substance: MINERALS\VITAMINS
     Dosage: 250-200-40-1 MG-UNIT-MG-MG

REACTIONS (1)
  - Corneal oedema [Not Recovered/Not Resolved]
